FAERS Safety Report 8525250-4 (Version None)
Quarter: 2012Q3

REPORT INFORMATION
  Report Type: 
  Country: None (occurrence: None)
  Receive Date: 20120720
  Receipt Date: 20120717
  Transmission Date: 20120928
  Serious: No
  Sender: FDA-Public Use
  Company Number: PHEH2012US006224

PATIENT
  Sex: Female
  Weight: 68.481 kg

DRUGS (3)
  1. TASIGNA [Suspect]
     Dosage: 300 MG, BID
     Route: 048
     Dates: start: 20120316
  2. LIPITOR [Concomitant]
  3. GLEEVEC [Suspect]

REACTIONS (3)
  - DRUG INEFFECTIVE [None]
  - MUSCLE SPASMS [None]
  - DIARRHOEA [None]
